FAERS Safety Report 13391914 (Version 4)
Quarter: 2019Q1

REPORT INFORMATION
  Report Type: Spontaneous
  Country: US (occurrence: US)
  Receive Date: 20170331
  Receipt Date: 20190212
  Transmission Date: 20190417
  Serious: Yes (Hospitalization, Other)
  Sender: FDA-Public Use
  Company Number: US-BIOMARINAP-US-2017-113433

PATIENT
  Age: 11 Year
  Sex: Female

DRUGS (3)
  1. ALDURAZYME [Suspect]
     Active Substance: LARONIDASE
     Indication: MUCOPOLYSACCHARIDOSIS I
     Dosage: 8.75 MG, QOW
     Route: 041
     Dates: start: 20070927
  2. ALDURAZYME [Suspect]
     Active Substance: LARONIDASE
     Dosage: 11.6 MG, QOW
     Route: 041
     Dates: start: 20110324
  3. ALDURAZYME [Suspect]
     Active Substance: LARONIDASE
     Dosage: UNK, QW
     Route: 041

REACTIONS (2)
  - Respiratory failure [Not Recovered/Not Resolved]
  - Hospitalisation [Unknown]

NARRATIVE: CASE EVENT DATE: 20161228
